FAERS Safety Report 6716676-X (Version None)
Quarter: 2010Q2

REPORT INFORMATION
  Report Type: 
  Country: None (occurrence: None)
  Receive Date: 20100510
  Receipt Date: 20100428
  Transmission Date: 20101027
  Serious: Yes (Other)
  Sender: FDA-Public Use
  Company Number: 2008BI022329

PATIENT
  Age: 32 Year
  Sex: Female
  Weight: 120 kg

DRUGS (4)
  1. TYSABRI [Suspect]
     Indication: MULTIPLE SCLEROSIS
     Route: 042
     Dates: start: 20080712, end: 20080806
  2. NEURONTIN [Concomitant]
  3. IBUPROFEN [Concomitant]
  4. VICODIN [Concomitant]

REACTIONS (2)
  - ANAPHYLACTIC SHOCK [None]
  - DRUG SPECIFIC ANTIBODY PRESENT [None]
